FAERS Safety Report 13804558 (Version 2)
Quarter: 2017Q3

REPORT INFORMATION
  Report Type: Report from Study
  Country: NL (occurrence: NL)
  Receive Date: 20170728
  Receipt Date: 20170912
  Transmission Date: 20171127
  Serious: Yes (Hospitalization)
  Sender: FDA-Public Use
  Company Number: NL-ROCHE-1813997

PATIENT
  Age: 72 Year
  Sex: Male
  Weight: 96 kg

DRUGS (7)
  1. TOCILIZUMAB. [Suspect]
     Active Substance: TOCILIZUMAB
     Dosage: UNIT DOSE: 736 MG
     Route: 042
     Dates: start: 20120531
  2. TOCILIZUMAB. [Suspect]
     Active Substance: TOCILIZUMAB
     Dosage: UNIT DOSE: 736 MG
     Route: 042
     Dates: start: 20120503
  3. TOCILIZUMAB. [Suspect]
     Active Substance: TOCILIZUMAB
     Dosage: UNIT DOSE: 736 MG
     Route: 042
     Dates: start: 20120308
  4. TOCILIZUMAB. [Suspect]
     Active Substance: TOCILIZUMAB
     Dosage: UNIT DOSE: 736 MG
     Route: 042
     Dates: start: 20120113
  5. TOCILIZUMAB. [Suspect]
     Active Substance: TOCILIZUMAB
     Dosage: UNIT DOSE: 736 MG
     Route: 042
     Dates: start: 20120209
  6. TOCILIZUMAB. [Suspect]
     Active Substance: TOCILIZUMAB
     Indication: RHEUMATOID ARTHRITIS
     Dosage: UNIT DOSE: 736 MG
     Route: 042
     Dates: start: 20110623
  7. TOCILIZUMAB. [Suspect]
     Active Substance: TOCILIZUMAB
     Dosage: UNIT DOSE: 736 MG
     Route: 042
     Dates: start: 20120405

REACTIONS (1)
  - Colon cancer [Recovered/Resolved]

NARRATIVE: CASE EVENT DATE: 20150827
